FAERS Safety Report 19486022 (Version 2)
Quarter: 2021Q3

REPORT INFORMATION
  Report Type: Spontaneous
  Country: SI (occurrence: SI)
  Receive Date: 20210702
  Receipt Date: 20210715
  Transmission Date: 20211014
  Serious: Yes (Other)
  Sender: FDA-Public Use
  Company Number: SI-REGENERON PHARMACEUTICALS, INC.-2021-64757

PATIENT

DRUGS (4)
  1. EYLEA [Suspect]
     Active Substance: AFLIBERCEPT
     Dosage: 2ND DOSE IN THE LEFT EYE
     Dates: start: 20210319
  2. EYLEA [Suspect]
     Active Substance: AFLIBERCEPT
     Dosage: THIRD DOSE IN THE LEFT EYE
     Dates: start: 20210419
  3. EYLEA [Suspect]
     Active Substance: AFLIBERCEPT
     Indication: NEOVASCULAR AGE-RELATED MACULAR DEGENERATION
     Dosage: FIRST DOSE LEFT EYE
     Dates: start: 20210218
  4. EYLEA [Suspect]
     Active Substance: AFLIBERCEPT
     Dosage: UNK, LEFT EYE
     Dates: start: 20210622

REACTIONS (4)
  - Detachment of retinal pigment epithelium [Not Recovered/Not Resolved]
  - Blindness unilateral [Not Recovered/Not Resolved]
  - Macular degeneration [Not Recovered/Not Resolved]
  - Subretinal hyperreflective exudation [Not Recovered/Not Resolved]

NARRATIVE: CASE EVENT DATE: 20210218
